FAERS Safety Report 26048476 (Version 1)
Quarter: 2025Q4

REPORT INFORMATION
  Report Type: Report from Study
  Country: EU (occurrence: EU)
  Receive Date: 20251114
  Receipt Date: 20251114
  Transmission Date: 20260118
  Serious: Yes (Death)
  Sender: BAUSCH AND LOMB
  Company Number: EU-SA-2025SA193149

PATIENT
  Age: 85 Year
  Sex: Female

DRUGS (23)
  1. DEXAMETHASONE [Suspect]
     Active Substance: DEXAMETHASONE
     Indication: Plasma cell myeloma refractory
     Route: 065
  2. DEXAMETHASONE [Suspect]
     Active Substance: DEXAMETHASONE
     Dosage: 40 MG, QW
     Route: 065
     Dates: start: 20240206, end: 20240227
  3. DEXAMETHASONE [Suspect]
     Active Substance: DEXAMETHASONE
     Dosage: 40 MG, BIW
     Route: 065
     Dates: start: 20240312, end: 20240326
  4. DEXAMETHASONE [Suspect]
     Active Substance: DEXAMETHASONE
     Dosage: 40 MG, BIW
     Route: 065
     Dates: start: 20240409, end: 20240423
  5. DEXAMETHASONE [Suspect]
     Active Substance: DEXAMETHASONE
     Dosage: 40 MG, BIW
     Route: 065
     Dates: start: 20240507, end: 20240521
  6. ISATUXIMAB [Suspect]
     Active Substance: ISATUXIMAB
     Indication: Plasma cell myeloma refractory
     Route: 065
  7. ISATUXIMAB [Suspect]
     Active Substance: ISATUXIMAB
     Dosage: 680 MG, QW
     Route: 065
     Dates: start: 20240206, end: 20240227
  8. ISATUXIMAB [Suspect]
     Active Substance: ISATUXIMAB
     Dosage: 660 MG, BIW
     Route: 065
     Dates: start: 20240312, end: 20240326
  9. ISATUXIMAB [Suspect]
     Active Substance: ISATUXIMAB
     Dosage: 660 MG, BIW
     Route: 065
     Dates: start: 20240409, end: 20240423
  10. ISATUXIMAB [Suspect]
     Active Substance: ISATUXIMAB
     Dosage: 660 MG, BIW
     Route: 065
     Dates: start: 20240507, end: 20240521
  11. POMALIDOMIDE [Suspect]
     Active Substance: POMALIDOMIDE
     Indication: Plasma cell myeloma refractory
     Route: 065
  12. POMALIDOMIDE [Suspect]
     Active Substance: POMALIDOMIDE
     Dosage: 4 MG, QD (DAILY 21 DAY/28)
     Route: 065
     Dates: start: 20240206, end: 20240224
  13. POMALIDOMIDE [Suspect]
     Active Substance: POMALIDOMIDE
     Dosage: 4 MG, QD
     Route: 065
     Dates: start: 20240312, end: 20240401
  14. POMALIDOMIDE [Suspect]
     Active Substance: POMALIDOMIDE
     Dosage: 4 MG, QD
     Route: 065
     Dates: start: 20240409, end: 20240429
  15. POMALIDOMIDE [Suspect]
     Active Substance: POMALIDOMIDE
     Dosage: 4 MG, QD
     Route: 065
     Dates: start: 20240507, end: 20240526
  16. ALLOPURINOL [Concomitant]
     Active Substance: ALLOPURINOL
     Indication: Product used for unknown indication
     Route: 065
     Dates: start: 20240409, end: 20240426
  17. BACTRIM [Concomitant]
     Active Substance: SULFAMETHOXAZOLE\TRIMETHOPRIM
     Indication: Premedication
     Dosage: UNK, TIW (EVERY MONDAY, WEDNESDAY, FRIDAY)
     Route: 065
     Dates: start: 20240206, end: 20240524
  18. VALACYCLOVIR HYDROCHLORIDE [Concomitant]
     Active Substance: VALACYCLOVIR HYDROCHLORIDE
     Indication: Premedication
     Dosage: UNK, QCY
     Route: 065
     Dates: start: 20240206, end: 20240527
  19. ELIQUIS [Concomitant]
     Active Substance: APIXABAN
     Indication: Arrhythmia
     Dosage: UNK
     Route: 065
     Dates: end: 20240527
  20. NEBIVOLOL [Concomitant]
     Active Substance: NEBIVOLOL
     Indication: Hypertension
     Dosage: UNK
     Route: 065
     Dates: end: 20240527
  21. FLECAINIDE [Concomitant]
     Active Substance: FLECAINIDE
     Indication: Arrhythmia
     Dosage: UNK
     Route: 065
     Dates: end: 20240527
  22. ATACAND [Concomitant]
     Active Substance: CANDESARTAN CILEXETIL
     Indication: Hypertension
     Dosage: UNK
     Route: 065
     Dates: end: 20240527
  23. LERCANIDIPINE [Concomitant]
     Active Substance: LERCANIDIPINE
     Indication: Hypertension
     Dosage: UNK
     Route: 065
     Dates: end: 20240527

REACTIONS (2)
  - Death [Fatal]
  - Tremor [Unknown]

NARRATIVE: CASE EVENT DATE: 20240521
